FAERS Safety Report 23992857 (Version 1)
Quarter: 2024Q2

REPORT INFORMATION
  Report Type: Spontaneous
  Country: DK (occurrence: DK)
  Receive Date: 20240620
  Receipt Date: 20240620
  Transmission Date: 20240715
  Serious: Yes (Hospitalization, Other)
  Sender: FDA-Public Use
  Company Number: None

PATIENT
  Age: 66 Year
  Sex: Male
  Weight: 80 kg

DRUGS (11)
  1. METFORMIN [Suspect]
     Active Substance: METFORMIN HYDROCHLORIDE
     Indication: Type 2 diabetes mellitus
     Dosage: METFORMIN ^TEVA^
     Route: 048
     Dates: start: 20240408, end: 20240409
  2. MELATONIN [Concomitant]
     Active Substance: MELATONIN
     Indication: Insomnia
     Route: 065
     Dates: start: 20240204
  3. LOPERAMIDE [Concomitant]
     Active Substance: LOPERAMIDE
     Indication: Diarrhoea
     Dosage: STRENGTH: 2 MG
     Route: 065
     Dates: start: 20240306
  4. ATORVASTATIN [Concomitant]
     Active Substance: ATORVASTATIN
     Indication: Hypercholesterolaemia
     Dosage: STRENGTH: 10 MG
     Dates: start: 2019
  5. CODEINE [Concomitant]
     Active Substance: CODEINE
     Indication: Movement disorder
     Dosage: 5ML MORNING, AFTERNOON AND NIGHT
     Route: 065
     Dates: start: 20240227
  6. INSULIN ASPART [Concomitant]
     Active Substance: INSULIN ASPART
     Indication: Type 2 diabetes mellitus
     Dosage: DOSAGE: 8 UNITS AS NECESSARY, MAX 6 TIMES DAILY STRENGTH: 100 E/ML?INSULIN ASPART PEN
     Route: 065
     Dates: start: 20240306
  7. APIXABAN [Concomitant]
     Active Substance: APIXABAN
     Indication: Thrombosis prophylaxis
     Route: 065
     Dates: start: 20240320
  8. PANTOPRAZOLE SODIUM [Concomitant]
     Active Substance: PANTOPRAZOLE SODIUM
     Indication: Prophylaxis against gastrointestinal ulcer
     Dosage: STRENGTH: 40 MG
     Dates: start: 20240317
  9. SEMGLEE [Concomitant]
     Indication: Type 2 diabetes mellitus
     Dosage: 14 UNITS IN THE MORNING
     Route: 065
     Dates: start: 20240208
  10. ACETAMINOPHEN [Concomitant]
     Active Substance: ACETAMINOPHEN
     Indication: Pain
     Route: 065
     Dates: start: 2013
  11. ENALAPRIL [Concomitant]
     Active Substance: ENALAPRIL
     Indication: Hypertension
     Route: 065
     Dates: start: 2020

REACTIONS (4)
  - Chest pain [Recovering/Resolving]
  - Malaise [Recovering/Resolving]
  - Lactic acidosis [Recovered/Resolved]
  - Nausea [Recovered/Resolved]

NARRATIVE: CASE EVENT DATE: 20240101
